FAERS Safety Report 15470247 (Version 1)
Quarter: 2018Q4

REPORT INFORMATION
  Report Type: Spontaneous
  Country: GB (occurrence: GB)
  Receive Date: 20181005
  Receipt Date: 20181005
  Transmission Date: 20190205
  Serious: Yes (Hospitalization)
  Sender: FDA-Public Use
  Company Number: GB-MYLANLABS-2018M1073407

PATIENT
  Sex: Male

DRUGS (3)
  1. CLOZARIL [Suspect]
     Active Substance: CLOZAPINE
     Dosage: 150 MG, UNK
     Route: 048
     Dates: start: 20181001
  2. CLOZARIL [Suspect]
     Active Substance: CLOZAPINE
     Indication: SCHIZOPHRENIA
     Dosage: UNK
     Route: 048
     Dates: start: 19980914
  3. CLOZARIL [Suspect]
     Active Substance: CLOZAPINE
     Dosage: 275 MG, UNK
     Route: 048
     Dates: start: 20180930

REACTIONS (2)
  - Product dose omission [Unknown]
  - Mental disorder [Unknown]

NARRATIVE: CASE EVENT DATE: 2018
